FAERS Safety Report 4331471-7 (Version None)
Quarter: 2004Q2

REPORT INFORMATION
  Report Type: 
  Country: None (occurrence: None)
  Receive Date: 20040401
  Receipt Date: 20040401
  Transmission Date: 20050107
  Serious: Yes (Other)
  Sender: FDA-Public Use
  Company Number: None

PATIENT
  Sex: Male
  Weight: 72.5755 kg

DRUGS (1)
  1. ALLEGRA [Suspect]
     Indication: RHINITIS ALLERGIC
     Dosage: 180 MG QD ORAL
     Route: 048
     Dates: start: 20040323, end: 20040324

REACTIONS (2)
  - PYREXIA [None]
  - VERTIGO [None]
